FAERS Safety Report 8572344-3 (Version None)
Quarter: 2012Q3

REPORT INFORMATION
  Report Type: 
  Country: None (occurrence: None)
  Receive Date: 20120806
  Receipt Date: 20120802
  Transmission Date: 20120928
  Serious: Yes (Death, Hospitalization, Other)
  Sender: FDA-Public Use
  Company Number: BR-ASTRAZENECA-2012SE54637

PATIENT
  Age: 77 Year
  Sex: Male

DRUGS (1)
  1. ATACAND HCT [Suspect]
     Indication: HYPERTENSION
     Dosage: 16/12.5 MG DAILY
     Route: 048
     Dates: start: 20070101

REACTIONS (5)
  - LUNG NEOPLASM MALIGNANT [None]
  - DIARRHOEA [None]
  - HYPOTENSION [None]
  - DEHYDRATION [None]
  - CARDIAC ARREST [None]
